FAERS Safety Report 22599775 (Version 1)
Quarter: 2023Q2

REPORT INFORMATION
  Report Type: Spontaneous
  Country: ES (occurrence: ES)
  Receive Date: 20230614
  Receipt Date: 20230614
  Transmission Date: 20230722
  Serious: Yes (Hospitalization)
  Sender: FDA-Public Use
  Company Number: None

PATIENT
  Age: 77 Year
  Sex: Male

DRUGS (2)
  1. GEMCITABINE [Interacting]
     Active Substance: GEMCITABINE
     Indication: Bladder neoplasm
     Dosage: UNK, CYCLICAL
     Route: 042
     Dates: start: 20140311, end: 20140311
  2. CARBOPLATIN [Interacting]
     Active Substance: CARBOPLATIN
     Indication: Bladder neoplasm
     Dosage: 190 MILLIGRAM,CYCLICAL
     Route: 042
     Dates: start: 20140304, end: 20140304

REACTIONS (2)
  - Thrombocytopenia [Recovered/Resolved]
  - Drug interaction [Unknown]

NARRATIVE: CASE EVENT DATE: 20140319
